FAERS Safety Report 6755932-6 (Version None)
Quarter: 2010Q2

REPORT INFORMATION
  Report Type: 
  Country: None (occurrence: None)
  Receive Date: 20100603
  Receipt Date: 20100603
  Transmission Date: 20101027
  Serious: No
  Sender: FDA-Public Use
  Company Number: None

PATIENT
  Age: 68 Year
  Sex: Male
  Weight: 100 kg

DRUGS (7)
  1. OMEPRAZOLE [Suspect]
     Indication: GASTROOESOPHAGEAL REFLUX PROPHYLAXIS
     Dosage: 20 MG. EC ONE Q. DAILEY PO
     Route: 048
     Dates: start: 20010101, end: 20100602
  2. COZAAR [Concomitant]
  3. MOTRIN [Concomitant]
  4. HYDROCODONE/ACETAMINAPHEN [Concomitant]
  5. LYRICA [Concomitant]
  6. SOTALOL [Concomitant]
  7. ARICEPT [Concomitant]

REACTIONS (1)
  - BODY HEIGHT DECREASED [None]
